FAERS Safety Report 7866377-X (Version None)
Quarter: 2011Q4

REPORT INFORMATION
  Report Type: 
  Country: None (occurrence: None)
  Receive Date: 20111028
  Receipt Date: 20110603
  Transmission Date: 20120403
  Serious: No
  Sender: FDA-Public Use
  Company Number: US-GLAXOSMITHKLINE-A0930598A

PATIENT
  Sex: Male

DRUGS (3)
  1. ASMANEX TWISTHALER [Concomitant]
  2. QVAR 40 [Concomitant]
  3. ADVAIR DISKUS 100/50 [Suspect]
     Indication: CHRONIC OBSTRUCTIVE PULMONARY DISEASE
     Route: 055

REACTIONS (1)
  - THROAT IRRITATION [None]
